FAERS Safety Report 7790606-4 (Version None)
Quarter: 2011Q3

REPORT INFORMATION
  Report Type: 
  Country: None (occurrence: None)
  Receive Date: 20110930
  Receipt Date: 20110922
  Transmission Date: 20111222
  Serious: Yes (Other)
  Sender: FDA-Public Use
  Company Number: PHHY2011TR85903

PATIENT
  Age: 51 Year
  Sex: Male

DRUGS (1)
  1. PREDNISOLONE [Suspect]
     Dosage: 80 MG, QD

REACTIONS (7)
  - CHEST PAIN [None]
  - CARDIAC VALVE VEGETATION [None]
  - FATIGUE [None]
  - STAPHYLOCOCCAL INFECTION [None]
  - PYREXIA [None]
  - MITRAL VALVE INCOMPETENCE [None]
  - ENDOCARDITIS [None]
